FAERS Safety Report 5701984-1 (Version None)
Quarter: 2008Q2

REPORT INFORMATION
  Report Type: 
  Country: None (occurrence: None)
  Receive Date: 20080411
  Receipt Date: 20070402
  Transmission Date: 20081010
  Serious: No
  Sender: FDA-Public Use
  Company Number: US-ABBOTT-07P-163-0364519-00

PATIENT
  Sex: Female
  Weight: 74.91 kg

DRUGS (2)
  1. DEPAKOTE [Suspect]
     Indication: MOOD SWINGS
     Route: 048
     Dates: start: 20070101, end: 20070401
  2. QUETIAPINE FUMARATE [Suspect]
     Indication: MOOD SWINGS
     Route: 048

REACTIONS (3)
  - FATIGUE [None]
  - MUSCULOSKELETAL STIFFNESS [None]
  - TREMOR [None]
